FAERS Safety Report 7553857-X (Version None)
Quarter: 2011Q2

REPORT INFORMATION
  Report Type: 
  Country: None (occurrence: None)
  Receive Date: 20110617
  Receipt Date: 20110613
  Transmission Date: 20111010
  Serious: Yes (Death)
  Sender: FDA-Public Use
  Company Number: PH-BRISTOL-MYERS SQUIBB COMPANY-14824809

PATIENT
  Age: 49 Year
  Sex: Male

DRUGS (5)
  1. WARFARIN SODIUM [Suspect]
     Indication: THROMBOSIS PROPHYLAXIS
     Route: 048
     Dates: start: 20090422, end: 20091017
  2. DIGOXIN [Concomitant]
     Dates: start: 20081216, end: 20091017
  3. PLACEBO [Suspect]
     Indication: THROMBOSIS PROPHYLAXIS
     Route: 048
     Dates: start: 20090422, end: 20091017
  4. MULTI-VITAMINS [Concomitant]
     Dates: start: 20090110, end: 20091017
  5. LOSARTAN POTASSIUM [Concomitant]
     Dates: start: 20090620, end: 20091017

REACTIONS (1)
  - SUDDEN CARDIAC DEATH [None]
